FAERS Safety Report 13893652 (Version 1)
Quarter: 2017Q3

REPORT INFORMATION
  Report Type: Spontaneous
  Country: AT (occurrence: AT)
  Receive Date: 20170822
  Receipt Date: 20170822
  Transmission Date: 20171127
  Serious: Yes (Life-Threatening)
  Sender: FDA-Public Use
  Company Number: AT-ALLERGAN-1735877US

PATIENT
  Age: 59 Year
  Sex: Male
  Weight: 90 kg

DRUGS (18)
  1. CEFEPIME [Suspect]
     Active Substance: CEFEPIME HYDROCHLORIDE
     Indication: C-REACTIVE PROTEIN INCREASED
     Dosage: 3 DF, QD
     Route: 042
     Dates: start: 20170707, end: 20170717
  2. BRICANYL [Concomitant]
     Active Substance: TERBUTALINE SULFATE
     Indication: RESPIRATORY DISTRESS
     Dosage: 1/2 AMP - 0 - 0
     Route: 042
     Dates: start: 20170704
  3. DIBONDRIN [Suspect]
     Active Substance: DIPHENHYDRAMINE HYDROCHLORIDE
     Indication: HYPERSENSITIVITY
     Dosage: 2 DF, QD
     Route: 042
     Dates: start: 20170626, end: 20170717
  4. LOVENOX [Concomitant]
     Active Substance: ENOXAPARIN SODIUM
     Indication: PROPHYLAXIS
     Dosage: 40 MG, QD
     Route: 065
     Dates: start: 20170429
  5. BERODUALIN [Concomitant]
     Indication: CHRONIC OBSTRUCTIVE PULMONARY DISEASE
     Dosage: 40 X 10 DROPS
     Route: 055
     Dates: start: 20170623
  6. LASIX [Concomitant]
     Active Substance: FUROSEMIDE
     Indication: POLYURIA
     Dosage: 40 MG, QD
     Route: 065
  7. TRITTICO RETARD [Suspect]
     Active Substance: TRAZODONE HYDROCHLORIDE
     Indication: DEPRESSION
     Dosage: 150 MG, QD
     Route: 065
     Dates: start: 20170519, end: 20170717
  8. FENTORON [Suspect]
     Active Substance: FENTANYL
     Indication: PAIN
     Dosage: 1 FENTORON 25 MICROGRAM/HOUR EVERY 3 DAYS
     Route: 065
     Dates: start: 20170531, end: 20170716
  9. LYRICA [Concomitant]
     Active Substance: PREGABALIN
     Indication: INTENSIVE CARE UNIT ACQUIRED WEAKNESS
     Dosage: 75 MG, BID
     Route: 065
     Dates: start: 20170622
  10. ADVANTAN [Concomitant]
     Active Substance: METHYLPREDNISOLONE ACEPONATE
     Indication: HYPERSENSITIVITY
     Dosage: 3 X TG1
     Route: 065
  11. ESCITALOPRAM OXALATE - BP [Suspect]
     Active Substance: ESCITALOPRAM OXALATE
     Indication: DEPRESSION
     Dosage: 10 MG, QD
     Route: 065
  12. APREDNISLON [Suspect]
     Active Substance: PREDNISOLONE
     Indication: CHRONIC OBSTRUCTIVE PULMONARY DISEASE
     Dosage: 5 MG, QD
     Route: 065
     Dates: start: 20170707, end: 20170717
  13. PULMICORT TURBUHALER [Concomitant]
     Active Substance: BUDESONIDE
     Indication: CHRONIC OBSTRUCTIVE PULMONARY DISEASE
     Dosage: 0.5 MG, BID
     Route: 055
     Dates: start: 20170501
  14. SPIRONO [Concomitant]
     Indication: POLYURIA
     Dosage: 25 MG, QD
     Route: 065
     Dates: start: 20170605
  15. SUPRARENIN [Suspect]
     Active Substance: EPINEPHRINE
     Indication: PROPHYLAXIS AGAINST BRONCHOSPASM
     Dosage: 2 MG, QD
     Route: 065
     Dates: start: 20170704, end: 20170717
  16. VENDAL [Suspect]
     Active Substance: MORPHINE HYDROCHLORIDE
     Indication: PAIN
     Dosage: UNK
     Route: 065
  17. NEXIUM [Concomitant]
     Active Substance: ESOMEPRAZOLE MAGNESIUM
     Indication: PROPHYLAXIS AGAINST GASTROINTESTINAL ULCER
     Dosage: 1-0-1
     Route: 065
  18. MOVICOL [Concomitant]
     Active Substance: POLYETHYLENE GLYCOL 3350\POTASSIUM CHLORIDE\SODIUM BICARBONATE\SODIUM CHLORIDE
     Indication: CONSTIPATION
     Dosage: 1 DF, QD
     Route: 065

REACTIONS (2)
  - Myoclonus [Recovered/Resolved]
  - Seizure [Recovered/Resolved]

NARRATIVE: CASE EVENT DATE: 20170717
